FAERS Safety Report 5393230-6 (Version None)
Quarter: 2007Q3

REPORT INFORMATION
  Report Type: 
  Country: None (occurrence: None)
  Receive Date: 20070718
  Receipt Date: 20060612
  Transmission Date: 20080115
  Serious: Yes (Hospitalization)
  Sender: FDA-Public Use
  Company Number: 2006075324

PATIENT
  Age: 47 Year
  Sex: Male
  Weight: 117.9352 kg

DRUGS (2)
  1. CELEBREX [Suspect]
     Indication: ARTHRALGIA
     Dosage: 20 MG 920 MG, 1 IN 1 D)
     Dates: start: 20040114
  2. CELEBREX [Suspect]
     Indication: JOINT SWELLING
     Dosage: 20 MG 920 MG, 1 IN 1 D)
     Dates: start: 20040114

REACTIONS (1)
  - MYOCARDIAL INFARCTION [None]
